FAERS Safety Report 4811701-5 (Version None)
Quarter: 2005Q4

REPORT INFORMATION
  Report Type: 
  Country: None (occurrence: None)
  Receive Date: 20051025
  Receipt Date: 20051012
  Transmission Date: 20060501
  Serious: Yes (Other)
  Sender: FDA-Public Use
  Company Number: 2005121856

PATIENT
  Age: 61 Year
  Sex: Female

DRUGS (1)
  1. LYRICA [Suspect]
     Indication: PAIN
     Dosage: 150 MG (75 MG, 2 IN 1 D), ORAL
     Route: 048
     Dates: start: 20050824, end: 20050825

REACTIONS (5)
  - ANXIETY [None]
  - DELUSION [None]
  - HALLUCINATION [None]
  - NEUROSIS [None]
  - PSYCHOTIC DISORDER [None]
